FAERS Safety Report 7954561-6 (Version None)
Quarter: 2011Q4

REPORT INFORMATION
  Report Type: 
  Country: None (occurrence: None)
  Receive Date: 20111202
  Receipt Date: 20111122
  Transmission Date: 20120403
  Serious: Yes (Hospitalization, Other)
  Sender: FDA-Public Use
  Company Number: PHHY2011FR102894

PATIENT
  Sex: Male

DRUGS (8)
  1. AMLODIPINE BESYLATE [Suspect]
     Dosage: 5 MG, QD
     Dates: start: 20100601, end: 20110922
  2. PANTOPRAZOLE SODIUM [Concomitant]
     Dosage: 20 MG, QD
  3. FUROSEMIDE [Concomitant]
     Dosage: 500 MG, QD
  4. NEORAL [Suspect]
     Dosage: 1 DF, BID
     Dates: start: 20101101
  5. PREDNISONE TAB [Suspect]
     Dosage: 10 MG, QD
  6. NEORAL [Suspect]
     Dosage: 150 MG IN THE MORNING AND NEORAL 125 MG IN THE EVENING
  7. RAMIPRIL [Suspect]
     Dosage: 5 MG, QD
     Dates: start: 20100601
  8. OROCAL D3 [Concomitant]
     Dosage: 2 DF, QD

REACTIONS (6)
  - HYPERTENSIVE ENCEPHALOPATHY [None]
  - NEPHROTIC SYNDROME [None]
  - GYNAECOMASTIA [None]
  - BREAST MASS [None]
  - BLOOD CORTISOL DECREASED [None]
  - HYPERPROLACTINAEMIA [None]
